FAERS Safety Report 10600469 (Version 13)
Quarter: 2016Q1

REPORT INFORMATION
  Report Type: Spontaneous
  Country: CN (occurrence: CN)
  Receive Date: 20141124
  Receipt Date: 20160311
  Transmission Date: 20160525
  Serious: Yes (Hospitalization)
  Sender: FDA-Public Use
  Company Number: CN-009507513-1411CHN007807

PATIENT
  Age: 60 Year
  Sex: Male
  Weight: 86 kg

DRUGS (16)
  1. AI DI ZHU SHE YE [Concomitant]
     Indication: NEOPLASM
     Dosage: TOTAL DAILY DOSE: 100ML/CC
     Route: 041
     Dates: start: 20141108, end: 20141110
  2. LEVOCARNITINE. [Concomitant]
     Active Substance: LEVOCARNITINE
     Indication: CARDIOVASCULAR EVENT PROPHYLAXIS
     Dosage: STRENGTH 1G/5ML, 3G DAILY
     Route: 041
     Dates: start: 20141108, end: 20141110
  3. SODIUM BICARBONATE. [Concomitant]
     Active Substance: SODIUM BICARBONATE
     Indication: PH URINE DECREASED
     Dosage: STRENGTH-5%1ML, 40ML/CC DAILY
     Route: 041
     Dates: start: 20141108, end: 20141110
  4. PANTOPRAZOLE [Concomitant]
     Active Substance: PANTOPRAZOLE SODIUM
     Indication: PROPHYLAXIS
     Dosage: 42.3 MG, QD, IVGTT
     Route: 041
     Dates: start: 20141102, end: 201411
  5. ONDANSETRON HYDROCHLORIDE. [Concomitant]
     Active Substance: ONDANSETRON HYDROCHLORIDE
     Indication: VOMITING
     Dosage: STRENGTH-4MG/2ML, 8MG DAILY
     Route: 042
     Dates: start: 20141108, end: 20141110
  6. TROPISETRON HYDROCHLORIDE [Concomitant]
     Active Substance: TROPISETRON HYDROCHLORIDE
     Indication: VOMITING
     Dosage: STRENGTH-5MG/1ML, 5MG DAILY
     Route: 042
     Dates: start: 20141108, end: 20141109
  7. DEXAMETHASONE. [Concomitant]
     Active Substance: DEXAMETHASONE
     Indication: VOMITING
     Dosage: STRENGTH-5MG/1ML, 5MG DAILY
     Route: 042
     Dates: start: 20141108, end: 20141110
  8. EMEND [Suspect]
     Active Substance: APREPITANT
     Indication: PROPHYLAXIS OF NAUSEA AND VOMITING
     Dosage: 125 MG, ONCE (DAY 1)
     Route: 048
     Dates: start: 20141108, end: 20141108
  9. IRINOTECAN HYDROCHLORIDE. [Concomitant]
     Active Substance: IRINOTECAN HYDROCHLORIDE
     Indication: CHEMOTHERAPY
     Dosage: 100MG/D1 TREATMENT CYCLE UNK/UNK
     Route: 041
     Dates: start: 20141108, end: 20141108
  10. CALCIUM CHLORIDE (+) DEXTROSE (+) MAGNESIUM CHLORIDE (+) POTASSIUM CHL [Concomitant]
     Indication: ELECTROLYTE SUBSTITUTION THERAPY
     Dosage: TOTAL DAILY DOSE: 500ML/CC
     Route: 041
     Dates: start: 20141108, end: 20141110
  11. EMEND [Suspect]
     Active Substance: APREPITANT
     Dosage: 80 MG,ONCE(DAY 2)
     Route: 048
     Dates: start: 20141109, end: 20141109
  12. GLUTATHIONE [Concomitant]
     Active Substance: GLUTATHIONE
     Indication: PROPHYLAXIS
     Dosage: TOTAL DAILY DOSE: 1.8 G. QD
     Route: 041
     Dates: start: 20141108, end: 20141110
  13. EMEND [Suspect]
     Active Substance: APREPITANT
     Dosage: 80 MG, ONCE (DAY 3)
     Route: 048
     Dates: start: 20141110, end: 20141110
  14. CISPLATIN. [Concomitant]
     Active Substance: CISPLATIN
     Indication: CHEMOTHERAPY
     Dosage: 40 MG, (D1-D3), IVGTT
     Route: 041
     Dates: start: 20141108, end: 20141110
  15. THYMOPENTIN [Concomitant]
     Active Substance: THYMOPENTIN
     Indication: IMMUNE SYSTEM DISORDER
     Dosage: DAILY DOSE: 50MG QD
     Route: 030
     Dates: start: 20141109, end: 20141120
  16. MANNITOL. [Concomitant]
     Active Substance: MANNITOL
     Indication: POLYURIA
     Dosage: STRENGTH-50G/250ML, 50G DAILY
     Route: 041
     Dates: start: 20141108, end: 20141110

REACTIONS (5)
  - Lumbar vertebral fracture [Recovered/Resolved]
  - Thrombocytopenia [Not Recovered/Not Resolved]
  - Haemoglobin decreased [Not Recovered/Not Resolved]
  - Wheezing [Recovering/Resolving]
  - Diarrhoea [Recovered/Resolved]

NARRATIVE: CASE EVENT DATE: 20141115
